FAERS Safety Report 12728050 (Version 1)
Quarter: 2016Q3

REPORT INFORMATION
  Report Type: Spontaneous
  Country: RO (occurrence: RO)
  Receive Date: 20160909
  Receipt Date: 20160909
  Transmission Date: 20161109
  Serious: Yes (Other)
  Sender: FDA-Public Use
  Company Number: RO-PFIZER INC-2016412337

PATIENT
  Age: 77 Year
  Sex: Male

DRUGS (4)
  1. SUTENT [Suspect]
     Active Substance: SUNITINIB MALATE
     Indication: CLEAR CELL RENAL CELL CARCINOMA
     Dosage: 50 MG, DAILY 4 WEEKS, 2 WEEKS OFF
     Dates: start: 201308, end: 201512
  2. ZOLEDRONIC ACID [Suspect]
     Active Substance: ZOLEDRONIC ACID
     Indication: CLEAR CELL RENAL CELL CARCINOMA
     Dosage: 4 MG, MONTHLY
     Route: 042
     Dates: start: 201308
  3. SUTENT [Suspect]
     Active Substance: SUNITINIB MALATE
     Dosage: 37.5 MG, DAILY
  4. SUTENT [Suspect]
     Active Substance: SUNITINIB MALATE
     Dosage: 50 MG, DAILY, 5 DAYS ON AND 2 DAYS OFF WEEKLY FOR 1 MONTH
     Dates: start: 201512

REACTIONS (9)
  - Leukopenia [Unknown]
  - Clear cell renal cell carcinoma [Unknown]
  - Constipation [Unknown]
  - Swelling face [Unknown]
  - Dysgeusia [Unknown]
  - Swollen tongue [Unknown]
  - Asthenia [Unknown]
  - Disease progression [Unknown]
  - Anaemia [Unknown]

NARRATIVE: CASE EVENT DATE: 201512
